FAERS Safety Report 15885593 (Version 1)
Quarter: 2019Q1

REPORT INFORMATION
  Report Type: Spontaneous
  Country: US (occurrence: US)
  Receive Date: 20190129
  Receipt Date: 20190129
  Transmission Date: 20190417
  Serious: Yes (Other)
  Sender: FDA-Public Use
  Company Number: US-THE MENTHOLATUM COMPANY-2061880

PATIENT
  Age: 28 Year
  Sex: Female
  Weight: 47.73 kg

DRUGS (1)
  1. ROHTO DRY-AID [Suspect]
     Active Substance: POVIDONE\PROPYLENE GLYCOL
     Indication: DRY EYE
     Route: 047
     Dates: start: 20190117, end: 20190117

REACTIONS (4)
  - Burning sensation [None]
  - Accidental exposure to product [None]
  - Eye irritation [None]
  - Eye pain [Recovered/Resolved]

NARRATIVE: CASE EVENT DATE: 20190117
